FAERS Safety Report 10052578 (Version 1)
Quarter: 2014Q2

REPORT INFORMATION
  Report Type: Spontaneous
  Country: US (occurrence: US)
  Receive Date: 20140402
  Receipt Date: 20140402
  Transmission Date: 20141212
  Serious: No
  Sender: FDA-Public Use
  Company Number: US-BAYER-2014-048314

PATIENT
  Age: 83 Year
  Sex: Male
  Weight: 86.62 kg

DRUGS (9)
  1. ALEVE TABLET [Suspect]
     Dosage: 1 DF, QD DAILY
     Route: 048
     Dates: end: 20140327
  2. VITAMIN C [Concomitant]
     Dosage: UNK
  3. MOTRIN [Concomitant]
     Dosage: UNK
  4. LIPITOR [Concomitant]
     Dosage: UNK
  5. ATENOLOL [Concomitant]
     Dosage: UNK
  6. FLOMAX [TAMSULOSIN HYDROCHLORIDE] [Concomitant]
     Dosage: UNK
  7. FOLIC ACID [Concomitant]
     Dosage: UNK
  8. MINOCYCLINE [Concomitant]
     Dosage: UNK
  9. HYDROXYZINE HYDROCHLORIDE [Concomitant]
     Dosage: UNK

REACTIONS (3)
  - Erythema [Not Recovered/Not Resolved]
  - Rash macular [Not Recovered/Not Resolved]
  - Expired product administered [None]
